FAERS Safety Report 4668402-6 (Version None)
Quarter: 2005Q2

REPORT INFORMATION
  Report Type: 
  Country: None (occurrence: None)
  Receive Date: 20050523
  Receipt Date: 20041213
  Transmission Date: 20051028
  Serious: Yes (Other)
  Sender: FDA-Public Use
  Company Number: PHRM2004FR03706

PATIENT
  Age: 47 Year
  Sex: Female
  Weight: 49 kg

DRUGS (10)
  1. ZOMETA [Suspect]
     Indication: MULTIPLE MYELOMA
     Dosage: 4 MG, QMO
     Route: 042
     Dates: start: 20020901, end: 20040901
  2. AREDIA [Suspect]
     Indication: MULTIPLE MYELOMA
     Dosage: 90 MG, QMO
     Route: 042
     Dates: start: 19971101, end: 20020201
  3. NORSET [Concomitant]
  4. SKENAN [Concomitant]
  5. DAFALGAN [Concomitant]
  6. DEXAMETHASONE [Concomitant]
     Indication: MULTIPLE MYELOMA
     Dosage: 40 MG DAILY X4 DAY/MONTH
     Dates: start: 19971101, end: 19980201
  7. DEXAMETHASONE [Concomitant]
     Dosage: 40 MG DAILY X4 DAY/MONTH
     Dates: start: 19991101, end: 20000201
  8. DEXAMETHASONE [Concomitant]
     Dosage: 40 MG DAILY X4 DAY/MONTH
     Dates: start: 20040401
  9. BONE MARROW TRANSPLANT [Concomitant]
     Dosage: AUTOLOGOUS BMT
     Dates: start: 19980101, end: 19980101
  10. BONE MARROW TRANSPLANT [Concomitant]
     Dosage: AUTOLOGOUS BMT
     Dates: start: 20000101, end: 20000101

REACTIONS (9)
  - IMPAIRED HEALING [None]
  - OSTEITIS [None]
  - OSTEOMYELITIS ACUTE [None]
  - OSTEONECROSIS [None]
  - PAIN IN JAW [None]
  - SEQUESTRECTOMY [None]
  - SKIN ULCER [None]
  - TOOTH EXTRACTION [None]
  - WOUND DEBRIDEMENT [None]
